FAERS Safety Report 15290145 (Version 1)
Quarter: 2018Q3

REPORT INFORMATION
  Report Type: Report from Study
  Country: US (occurrence: US)
  Receive Date: 20180817
  Receipt Date: 20180817
  Transmission Date: 20181010
  Serious: Yes (Other)
  Sender: FDA-Public Use
  Company Number: US-JNJFOC-20180817604

PATIENT
  Age: 62 Year
  Sex: Male

DRUGS (4)
  1. IMBRUVICA [Suspect]
     Active Substance: IBRUTINIB
     Indication: CHRONIC LYMPHOCYTIC LEUKAEMIA
     Route: 048
     Dates: start: 20170204
  2. IMBRUVICA [Suspect]
     Active Substance: IBRUTINIB
     Indication: TUMOUR LYSIS SYNDROME
     Route: 048
     Dates: start: 20170204
  3. IMBRUVICA [Suspect]
     Active Substance: IBRUTINIB
     Indication: CHRONIC LYMPHOCYTIC LEUKAEMIA
     Route: 048
     Dates: start: 20180412
  4. IMBRUVICA [Suspect]
     Active Substance: IBRUTINIB
     Indication: TUMOUR LYSIS SYNDROME
     Route: 048
     Dates: start: 20180412

REACTIONS (4)
  - Off label use [Unknown]
  - Product use in unapproved indication [Unknown]
  - Intentional overdose [Unknown]
  - Extra dose administered [Unknown]

NARRATIVE: CASE EVENT DATE: 20170204
